FAERS Safety Report 5925154-7 (Version None)
Quarter: 2008Q4

REPORT INFORMATION
  Report Type: 
  Country: None (occurrence: None)
  Receive Date: 20081021
  Receipt Date: 20081009
  Transmission Date: 20090506
  Serious: Yes (Death)
  Sender: FDA-Public Use
  Company Number: JP-ABBOTT-08P-087-0477179-00

PATIENT
  Age: 81 Year
  Sex: Male

DRUGS (5)
  1. LEUPROLIDE ACETATE [Suspect]
     Indication: PROSTATE CANCER STAGE IV
     Route: 058
     Dates: start: 20071205, end: 20080216
  2. LEUPROLIDE ACETATE [Suspect]
     Route: 058
     Dates: end: 20071107
  3. BICALUTAMIDE [Concomitant]
     Indication: PROSTATE CANCER STAGE IV
     Route: 048
     Dates: end: 20071230
  4. AMLODIN OD [Concomitant]
     Indication: HYPERTENSION
     Route: 048
     Dates: end: 20071230
  5. ALOSENN [Concomitant]
     Indication: CONSTIPATION
     Route: 048
     Dates: end: 20071230

REACTIONS (2)
  - GENERAL PHYSICAL HEALTH DETERIORATION [None]
  - PNEUMONIA ASPIRATION [None]
